FAERS Safety Report 6932820-3 (Version None)
Quarter: 2010Q3

REPORT INFORMATION
  Report Type: 
  Country: None (occurrence: None)
  Receive Date: 20100819
  Receipt Date: 20100804
  Transmission Date: 20110219
  Serious: Yes (Other)
  Sender: FDA-Public Use
  Company Number: US-ROCHE-714876

PATIENT
  Sex: Male
  Weight: 98.9 kg

DRUGS (2)
  1. ACTEMRA [Suspect]
     Indication: RHEUMATOID ARTHRITIS
     Dosage: FORM: INFUSION
     Route: 042
     Dates: start: 20100610
  2. RITUXAN [Suspect]
     Route: 065

REACTIONS (7)
  - CELLULITIS [None]
  - CONVULSION [None]
  - COUGH [None]
  - DEMENTIA [None]
  - ECCHYMOSIS [None]
  - FALL [None]
  - RESTLESS LEGS SYNDROME [None]
